FAERS Safety Report 7909388-8 (Version None)
Quarter: 2011Q4

REPORT INFORMATION
  Report Type: 
  Country: None (occurrence: None)
  Receive Date: 20111111
  Receipt Date: 20111109
  Transmission Date: 20120403
  Serious: Yes (Hospitalization)
  Sender: FDA-Public Use
  Company Number: US-CEPHALON-2011005754

PATIENT
  Sex: Male
  Weight: 125 kg

DRUGS (1)
  1. BENDAMUSTINE HCL [Suspect]
     Indication: NON-HODGKIN'S LYMPHOMA
     Route: 042
     Dates: start: 20110429, end: 20111002

REACTIONS (3)
  - NEISSERIA TEST POSITIVE [None]
  - LUNG INFECTION [None]
  - STREPTOCOCCUS TEST POSITIVE [None]
